FAERS Safety Report 8549944-X (Version None)
Quarter: 2012Q3

REPORT INFORMATION
  Report Type: 
  Country: None (occurrence: None)
  Receive Date: 20120730
  Receipt Date: 20120720
  Transmission Date: 20120928
  Serious: Yes (Congenital Anomaly, Other)
  Sender: FDA-Public Use
  Company Number: US-PURDUE-USA-2012-0090553

PATIENT
  Sex: Female

DRUGS (1)
  1. OXYCONTIN [Suspect]
     Indication: DRUG DEPENDENCE

REACTIONS (3)
  - CONGENITAL OESOPHAGEAL ANOMALY [None]
  - FOETAL EXPOSURE DURING PREGNANCY [None]
  - DRUG DEPENDENCE [None]
